FAERS Safety Report 12712697 (Version 2)
Quarter: 2016Q3

REPORT INFORMATION
  Report Type: Report from Study
  Country: DE (occurrence: DE)
  Receive Date: 20160902
  Receipt Date: 20160909
  Transmission Date: 20161109
  Serious: Yes (Death, Hospitalization)
  Sender: FDA-Public Use
  Company Number: PHHY2016DE120758

PATIENT
  Sex: Female

DRUGS (2)
  1. AFINITOR [Suspect]
     Active Substance: EVEROLIMUS
     Indication: BREAST CANCER METASTATIC
     Dosage: 5 MG, QD
     Route: 048
     Dates: start: 20160604, end: 20160823
  2. EXEMESTANE. [Concomitant]
     Active Substance: EXEMESTANE
     Indication: BREAST CANCER METASTATIC
     Dosage: 25 MG, QD
     Route: 048
     Dates: start: 20160604, end: 20160823

REACTIONS (18)
  - Dyspnoea [Fatal]
  - Pallor [Fatal]
  - Mean cell haemoglobin concentration decreased [Unknown]
  - Protein total decreased [Unknown]
  - General physical health deterioration [Fatal]
  - Troponin increased [Unknown]
  - Disorientation [Fatal]
  - Malignant neoplasm progression [Fatal]
  - Somnolence [Fatal]
  - Rales [Fatal]
  - Blood creatinine increased [Unknown]
  - Blood urea increased [Unknown]
  - Tongue coated [Unknown]
  - C-reactive protein increased [Unknown]
  - Tachycardia [Fatal]
  - Glomerular filtration rate decreased [Unknown]
  - Heart sounds abnormal [Unknown]
  - Mydriasis [Unknown]

NARRATIVE: CASE EVENT DATE: 20160823
